FAERS Safety Report 8194119 (Version 11)
Quarter: 2013Q4

REPORT INFORMATION
  Report Type: Spontaneous
  Country: US (occurrence: US)
  Receive Date: 20111021
  Receipt Date: 20131008
  Transmission Date: 20140711
  Serious: Yes (Hospitalization, Disabling, Other)
  Sender: FDA-Public Use
  Company Number: US-009507513-1110USA02741

PATIENT
  Sex: Female
  Weight: 87.54 kg

DRUGS (4)
  1. FOSAMAX [Suspect]
     Indication: OSTEOPOROSIS PROPHYLAXIS
     Dosage: 70 MG, QW
     Route: 048
     Dates: start: 20030805, end: 20080203
  2. FOSAMAX [Suspect]
     Indication: OSTEOPOROSIS
  3. ONE-A-DAY ESSENTIAL VITAMINS [Concomitant]
     Route: 048
  4. FOSAMAX [Suspect]
     Indication: OSTEOPOROSIS PROPHYLAXIS
     Dosage: 70 MG, QW
     Route: 048
     Dates: start: 20080305, end: 20110328

REACTIONS (42)
  - Femur fracture [Recovered/Resolved]
  - Low turnover osteopathy [Not Recovered/Not Resolved]
  - Femur fracture [Unknown]
  - Fall [Unknown]
  - Appendicitis perforated [Unknown]
  - Abdominal abscess [Unknown]
  - Ventricular extrasystoles [Unknown]
  - Back disorder [Unknown]
  - Back disorder [Unknown]
  - Pleural effusion [Unknown]
  - Renal cyst [Unknown]
  - Intramedullary rod insertion [Unknown]
  - Surgery [Unknown]
  - Appendicectomy [Unknown]
  - Fall [Unknown]
  - Pituitary tumour benign [Unknown]
  - Fall [Unknown]
  - Depression [Unknown]
  - Back disorder [Unknown]
  - Arthropathy [Unknown]
  - Sensory loss [Not Recovered/Not Resolved]
  - Bronchitis [Unknown]
  - Tinnitus [Not Recovered/Not Resolved]
  - Fibrocystic breast disease [Not Recovered/Not Resolved]
  - Otitis media chronic [Unknown]
  - Neuropathy peripheral [Unknown]
  - Type V hyperlipidaemia [Unknown]
  - Essential hypertension [Unknown]
  - Cough [Unknown]
  - Urinary incontinence [Unknown]
  - Rhinitis allergic [Unknown]
  - Dermatitis contact [Unknown]
  - Spondylolisthesis [Unknown]
  - Scoliosis [Unknown]
  - Intervertebral disc degeneration [Unknown]
  - Spinal osteoarthritis [Unknown]
  - Spinal column stenosis [Unknown]
  - Back pain [Recovering/Resolving]
  - Gastrooesophageal reflux disease [Unknown]
  - Back pain [Unknown]
  - Pain in extremity [Unknown]
  - Muscle spasms [Recovering/Resolving]
